FAERS Safety Report 6821159-2 (Version None)
Quarter: 2010Q3

REPORT INFORMATION
  Report Type: 
  Country: None (occurrence: None)
  Receive Date: 20100707
  Receipt Date: 20080216
  Transmission Date: 20110219
  Serious: No
  Sender: FDA-Public Use
  Company Number: US-PFIZER INC-2007090131

PATIENT
  Sex: Female
  Weight: 61.4 kg

DRUGS (3)
  1. ZOLOFT [Suspect]
     Indication: DEPRESSION
     Route: 048
     Dates: start: 20070906, end: 20071109
  2. WELLBUTRIN [Concomitant]
  3. AMBIEN [Concomitant]
     Dates: start: 20060701

REACTIONS (7)
  - BLADDER DISORDER [None]
  - DIARRHOEA [None]
  - HYPOAESTHESIA [None]
  - MICTURITION URGENCY [None]
  - NAUSEA [None]
  - PARAESTHESIA [None]
  - POLLAKIURIA [None]
